FAERS Safety Report 18994561 (Version 1)
Quarter: 2021Q1

REPORT INFORMATION
  Report Type: Spontaneous
  Country: DE (occurrence: DE)
  Receive Date: 20210310
  Receipt Date: 20210310
  Transmission Date: 20210420
  Serious: Yes (Other)
  Sender: FDA-Public Use
  Company Number: DE-009507513-2103DEU001687

PATIENT
  Sex: Female
  Weight: 95 kg

DRUGS (1)
  1. VELMETIA [Suspect]
     Active Substance: METFORMIN\SITAGLIPTIN
     Dosage: 50MG/1000MG, ONCE DAILY
     Route: 048
     Dates: start: 202002, end: 202005

REACTIONS (1)
  - Poisoning [Not Recovered/Not Resolved]

NARRATIVE: CASE EVENT DATE: 202003
